FAERS Safety Report 8504867-7 (Version None)
Quarter: 2012Q2

REPORT INFORMATION
  Report Type: 
  Country: None (occurrence: None)
  Receive Date: 20120405
  Receipt Date: 20100805
  Transmission Date: 20120825
  Serious: Yes (Life-Threatening)
  Sender: FDA-Public Use
  Company Number: PHHY2010US51781

PATIENT
  Age: 78 Year
  Sex: Female

DRUGS (1)
  1. RECLAST [Suspect]
     Dosage: , INFUSION

REACTIONS (6)
  - ARTHRALGIA [None]
  - MALAISE [None]
  - MYALGIA [None]
  - HEADACHE [None]
  - PAIN [None]
  - PYREXIA [None]
